FAERS Safety Report 19658599 (Version 3)
Quarter: 2021Q3

REPORT INFORMATION
  Report Type: Spontaneous
  Country: US (occurrence: US)
  Receive Date: 20210805
  Receipt Date: 20210908
  Transmission Date: 20211014
  Serious: No
  Sender: FDA-Public Use
  Company Number: US-UNITED THERAPEUTICS-UNT-2021-014895

PATIENT
  Sex: Male

DRUGS (2)
  1. TYVASO [Suspect]
     Active Substance: TREPROSTINIL
     Dosage: 36 ?G, QID
     Dates: start: 202107, end: 20210827
  2. TYVASO [Suspect]
     Active Substance: TREPROSTINIL
     Indication: PULMONARY ARTERIAL HYPERTENSION
     Dosage: UNK
     Dates: start: 20210713

REACTIONS (4)
  - Haemoptysis [Unknown]
  - Fall [Recovered/Resolved with Sequelae]
  - Treatment noncompliance [Unknown]
  - Joint injury [Unknown]

NARRATIVE: CASE EVENT DATE: 2021
